FAERS Safety Report 11080191 (Version 1)
Quarter: 2015Q2

REPORT INFORMATION
  Report Type: Spontaneous
  Country: US (occurrence: US)
  Receive Date: 20150430
  Receipt Date: 20150430
  Transmission Date: 20150821
  Serious: No
  Sender: FDA-Public Use
  Company Number: US-BAYER-2015-156530

PATIENT
  Age: 9 Year
  Sex: Female
  Weight: 34.14 kg

DRUGS (3)
  1. CLARITIN [Suspect]
     Active Substance: LORATADINE
     Indication: URTICARIA
     Dosage: UNK
  2. CLARITIN [Suspect]
     Active Substance: LORATADINE
     Indication: LIP SWELLING
  3. FLINTSTONES PLUS IMMUNITY SUPPORT CHEWABLE [Suspect]
     Active Substance: VITAMINS
     Dosage: 1 DF, QD
     Route: 048
     Dates: start: 2007, end: 201503

REACTIONS (3)
  - Urticaria [Recovered/Resolved]
  - Medication error [None]
  - Lip swelling [Recovered/Resolved]
